FAERS Safety Report 18052070 (Version 1)
Quarter: 2020Q3

REPORT INFORMATION
  Report Type: Spontaneous
  Country: GB (occurrence: GB)
  Receive Date: 20200722
  Receipt Date: 20200722
  Transmission Date: 20201103
  Serious: Yes (Other)
  Sender: FDA-Public Use
  Company Number: GB-TEVA-2020-GB-1802220

PATIENT
  Age: 37 Year
  Sex: Female
  Weight: 123 kg

DRUGS (1)
  1. FOLIC ACID. [Suspect]
     Active Substance: FOLIC ACID
     Indication: FOLATE DEFICIENCY
     Dosage: 5 MG
     Route: 048
     Dates: start: 20200625, end: 20200625

REACTIONS (3)
  - Pharyngeal swelling [Unknown]
  - Hypersensitivity [Recovered/Resolved]
  - Swelling face [Unknown]
